FAERS Safety Report 6418364-6 (Version None)
Quarter: 2009Q4

REPORT INFORMATION
  Report Type: 
  Country: None (occurrence: None)
  Receive Date: 20091021
  Receipt Date: 20090624
  Transmission Date: 20100525
  Serious: No
  Sender: FDA-Public Use
  Company Number: ALL1-2009-01749

PATIENT
  Age: 17 Year
  Sex: Male
  Weight: 72.6 kg

DRUGS (1)
  1. VYVANSE [Suspect]
     Indication: ATTENTION DEFICIT/HYPERACTIVITY DISORDER
     Dosage: 70 MG, 1X/DAY:QD, ORAL
     Route: 048
     Dates: start: 20090530, end: 20090601

REACTIONS (6)
  - EYE PAIN [None]
  - IRRITABILITY [None]
  - MEMORY IMPAIRMENT [None]
  - MOOD SWINGS [None]
  - OFF LABEL USE [None]
  - VISION BLURRED [None]
